FAERS Safety Report 17516595 (Version 1)
Quarter: 2020Q1

REPORT INFORMATION
  Report Type: Spontaneous
  Country: US (occurrence: US)
  Receive Date: 20200309
  Receipt Date: 20200309
  Transmission Date: 20200409
  Serious: Yes (Other)
  Sender: FDA-Public Use
  Company Number: US-VISTAPHARM, INC.-VER202002-000493

PATIENT
  Age: 38 Year
  Sex: Female

DRUGS (3)
  1. HYDROCODONE AND ACETAMINOPHEN [Suspect]
     Active Substance: ACETAMINOPHEN\HYDROCODONE
     Indication: FACIAL PAIN
     Dosage: UNKNOWN (CRUSHED ACETAMINOPHEN)
  2. HYDROCODONE AND ACETAMINOPHEN [Suspect]
     Active Substance: ACETAMINOPHEN\HYDROCODONE
     Indication: NASAL CONGESTION
  3. HYDROCODONE AND ACETAMINOPHEN [Suspect]
     Active Substance: ACETAMINOPHEN\HYDROCODONE
     Indication: OROPHARYNGEAL PAIN

REACTIONS (4)
  - Sinusitis [Recovered/Resolved]
  - Wrong technique in product usage process [Unknown]
  - Soft tissue necrosis [Recovered/Resolved]
  - Fungal infection [Recovered/Resolved]
